FAERS Safety Report 7911954-0 (Version None)
Quarter: 2011Q4

REPORT INFORMATION
  Report Type: 
  Country: None (occurrence: None)
  Receive Date: 20111114
  Receipt Date: 20111108
  Transmission Date: 20120403
  Serious: Yes (Death, Hospitalization)
  Sender: FDA-Public Use
  Company Number: DE-ROCHE-1010826

PATIENT
  Sex: Female
  Weight: 47 kg

DRUGS (3)
  1. ZOLEDRONIC ACID [Suspect]
     Indication: METASTASES TO BONE
     Route: 042
     Dates: start: 20110513, end: 20111014
  2. XELODA [Suspect]
     Indication: BREAST CANCER METASTATIC
     Route: 048
     Dates: start: 20110801, end: 20110903
  3. LAPATINIB [Suspect]
     Indication: BREAST CANCER METASTATIC
     Route: 048
     Dates: start: 20110801, end: 20111104

REACTIONS (4)
  - GENERAL PHYSICAL HEALTH DETERIORATION [None]
  - DEATH [None]
  - PERIPHERAL COLDNESS [None]
  - DIARRHOEA [None]
